FAERS Safety Report 23387943 (Version 3)
Quarter: 2024Q1

REPORT INFORMATION
  Report Type: Report from Study
  Country: US (occurrence: US)
  Receive Date: 20240110
  Receipt Date: 20240223
  Transmission Date: 20240410
  Serious: Yes (Other)
  Sender: FDA-Public Use
  Company Number: US-ABBVIE-5460940

PATIENT
  Sex: Female
  Weight: 82 kg

DRUGS (3)
  1. HUMIRA [Suspect]
     Active Substance: ADALIMUMAB
     Indication: Psoriasis
     Dosage: FORM STRENGTH: 40 MG?CITRATE FREE?LAST ADMIN DATE 2023
     Route: 058
     Dates: start: 20230224
  2. HUMIRA [Suspect]
     Active Substance: ADALIMUMAB
     Route: 058
     Dates: start: 20230224
  3. COVID-19 vaccine [Concomitant]
     Indication: Product used for unknown indication
     Dosage: FREQUENCY: ONE IN ONCE
     Route: 030

REACTIONS (8)
  - Knee arthroplasty [Unknown]
  - Psoriatic arthropathy [Unknown]
  - Pain [Unknown]
  - COVID-19 [Recovered/Resolved]
  - Musculoskeletal discomfort [Unknown]
  - Gait disturbance [Recovering/Resolving]
  - Arthralgia [Unknown]
  - Pain in extremity [Unknown]

NARRATIVE: CASE EVENT DATE: 20230101
